FAERS Safety Report 8954613 (Version 1)
Quarter: 2012Q4

REPORT INFORMATION
  Report Type: 
  Country: US (occurrence: US)
  Receive Date: 20121209
  Receipt Date: 20121209
  Transmission Date: 20130627
  Serious: No
  Sender: FDA-Public Use
  Company Number: US-009507513-1212USA001012

PATIENT
  Sex: Male

DRUGS (3)
  1. CLARITIN REDITABS [Suspect]
     Indication: RHINORRHOEA
     Dosage: 10 mg, Once
     Route: 048
     Dates: start: 20120921
  2. CLARITIN REDITABS [Suspect]
     Indication: HEADACHE
  3. CLARITIN REDITABS [Suspect]
     Indication: MEDICAL OBSERVATION

REACTIONS (2)
  - Drug ineffective [Unknown]
  - Off label use [Unknown]
